FAERS Safety Report 8843097 (Version 4)
Quarter: 2015Q1

REPORT INFORMATION
  Report Type: Report from Study
  Country: GR (occurrence: GR)
  Receive Date: 20121016
  Receipt Date: 20150323
  Transmission Date: 20150721
  Serious: Yes (Other)
  Sender: FDA-Public Use
  Company Number: GR-ROCHE-1144382

PATIENT
  Sex: Female

DRUGS (3)
  1. DOCETAXEL. [Suspect]
     Active Substance: DOCETAXEL
     Indication: BREAST CANCER METASTATIC
     Dosage: OVER 60 MINS, ON DAYS 1 AND 15, IN CYCLES OF 28 DAYS
     Route: 042
  2. GEMCITABINE [Suspect]
     Active Substance: GEMCITABINE\GEMCITABINE HYDROCHLORIDE
     Indication: BREAST CANCER METASTATIC
     Dosage: OVER 30 MINS, ON DAYS 1 AND 15, IN CYCLES OF 28 DAYS
     Route: 042
  3. BEVACIZUMAB [Suspect]
     Active Substance: BEVACIZUMAB
     Indication: BREAST CANCER METASTATIC
     Dosage: ON DAYS 1 AND 15, IN CYCLES OF 28 DAYS.
     Route: 042

REACTIONS (14)
  - Diarrhoea [Unknown]
  - Haemorrhage [Unknown]
  - Vomiting [Unknown]
  - Neutropenia [Unknown]
  - Leukopenia [Unknown]
  - Nail disorder [Unknown]
  - Deep vein thrombosis [Unknown]
  - Constipation [Unknown]
  - Fatigue [Unknown]
  - Hypersensitivity [Unknown]
  - Proteinuria [Unknown]
  - Neurotoxicity [Unknown]
  - Nausea [Unknown]
  - Stomatitis [Unknown]
